FAERS Safety Report 9432247 (Version 1)
Quarter: 2013Q3

REPORT INFORMATION
  Report Type: Report from Study
  Country: SE (occurrence: SE)
  Receive Date: 20130731
  Receipt Date: 20130731
  Transmission Date: 20140515
  Serious: Yes (Hospitalization, Other)
  Sender: FDA-Public Use
  Company Number: PHHO2013SE009751

PATIENT
  Age: 52 Year
  Sex: Male

DRUGS (11)
  1. EVEROLIMUS [Suspect]
     Indication: RENAL CELL CARCINOMA
     Dosage: 10 MG, QD
     Route: 048
     Dates: start: 20130212
  2. CEFUROXIME [Concomitant]
     Dates: start: 20130613
  3. COCILLANA                               /FIN/ [Concomitant]
     Dates: start: 20130613
  4. METOPROLOL [Concomitant]
  5. LOPERAMIDE [Concomitant]
     Dates: start: 20120301
  6. PARACETAMOL [Concomitant]
     Dates: start: 20120320
  7. OMEPRAZOLE [Concomitant]
     Dates: start: 20120425
  8. IBUPROFEN [Concomitant]
     Dates: start: 20121002
  9. SERTRALINE [Concomitant]
     Dates: start: 20121123
  10. FERROUS GLYCINE SULFATE [Concomitant]
     Dates: start: 20130408
  11. LORATADIN [Concomitant]
     Dates: start: 20130412

REACTIONS (3)
  - Cough [Unknown]
  - C-reactive protein increased [Unknown]
  - Pyrexia [Recovered/Resolved]
